FAERS Safety Report 19073513 (Version 1)
Quarter: 2021Q1

REPORT INFORMATION
  Report Type: Spontaneous
  Country: US (occurrence: US)
  Receive Date: 20210330
  Receipt Date: 20210330
  Transmission Date: 20210420
  Serious: Yes (Death)
  Sender: FDA-Public Use
  Company Number: None

PATIENT
  Age: 32 Year
  Sex: Female

DRUGS (1)
  1. ZA ZA RED ? MT DISTRIBUTIONS, MT BRANDS, AND M+J BRANDS OF CAPE CORAL [Suspect]
     Active Substance: TIANEPTINE
     Indication: BACK PAIN
     Dates: start: 20210204, end: 20210206

REACTIONS (1)
  - Death [None]

NARRATIVE: CASE EVENT DATE: 20210206
